FAERS Safety Report 25161459 (Version 1)
Quarter: 2025Q2

REPORT INFORMATION
  Report Type: Spontaneous
  Country: TW (occurrence: TW)
  Receive Date: 20250404
  Receipt Date: 20250404
  Transmission Date: 20250717
  Serious: Yes (Other)
  Sender: MERCK SHARP AND DOHME
  Company Number: TW-009507513-2269265

PATIENT
  Age: 71 Year
  Sex: Female

DRUGS (2)
  1. PEMBROLIZUMAB [Suspect]
     Active Substance: PEMBROLIZUMAB
     Indication: Papillary serous endometrial carcinoma
     Dates: end: 202402
  2. PEMBROLIZUMAB [Suspect]
     Active Substance: PEMBROLIZUMAB
     Indication: Papillary serous endometrial carcinoma
     Dates: start: 202404, end: 202502

REACTIONS (2)
  - Hypothyroidism [Unknown]
  - Leukopenia [Unknown]
